FAERS Safety Report 23463679 (Version 1)
Quarter: 2024Q1

REPORT INFORMATION
  Report Type: Spontaneous
  Country: FR (occurrence: FR)
  Receive Date: 20240131
  Receipt Date: 20240131
  Transmission Date: 20240410
  Serious: Yes (Hospitalization, Other)
  Sender: FDA-Public Use
  Company Number: FR-AFSSAPS-AVCN2024000004

PATIENT
  Age: 26 Year
  Sex: Male

DRUGS (7)
  1. DIAZEPAM [Suspect]
     Active Substance: DIAZEPAM
     Indication: Product used for unknown indication
     Dosage: JUSQUE 60MG/J
     Route: 048
  2. PREGABALIN [Suspect]
     Active Substance: PREGABALIN
     Indication: Product used for unknown indication
     Dosage: UNK
     Route: 048
  3. TRAMADOL [Suspect]
     Active Substance: TRAMADOL\TRAMADOL HYDROCHLORIDE
     Indication: Product used for unknown indication
     Dosage: PARFOIS PAR POIGN?ES
     Route: 048
  4. ALCOHOL [Suspect]
     Active Substance: ALCOHOL
     Indication: Product used for unknown indication
     Dosage: 40U/J
     Route: 048
     Dates: start: 2014
  5. CANNABIDIOL [Suspect]
     Active Substance: CANNABIDIOL
     Indication: Product used for unknown indication
     Dosage: UNK
  6. CANNABIS SATIVA SUBSP. INDICA TOP [Suspect]
     Active Substance: CANNABIS SATIVA SUBSP. INDICA TOP
     Indication: Product used for unknown indication
     Dosage: UNK
  7. BROMHEXINE HYDROCHLORIDE\GUAIFENESIN\MENTHOL\TERBUTALINE SULFATE [Suspect]
     Active Substance: BROMHEXINE HYDROCHLORIDE\GUAIFENESIN\MENTHOL\TERBUTALINE SULFATE
     Indication: Product used for unknown indication
     Dosage: 1,5 PAQUETS DE CIGARETTES/J

REACTIONS (2)
  - Behavioural addiction [Not Recovered/Not Resolved]
  - Drug abuse [Not Recovered/Not Resolved]
